FAERS Safety Report 10971374 (Version 1)
Quarter: 2015Q1

REPORT INFORMATION
  Report Type: Spontaneous
  Country: HK (occurrence: HK)
  Receive Date: 20150331
  Receipt Date: 20150331
  Transmission Date: 20150721
  Serious: Yes (Other)
  Sender: FDA-Public Use
  Company Number: HK-AMGEN-HKGSP2015028891

PATIENT
  Sex: Female

DRUGS (2)
  1. ENBREL [Suspect]
     Active Substance: ETANERCEPT
     Indication: PRODUCT USED FOR UNKNOWN INDICATION
     Dosage: 50 MG, WEEKLY
     Route: 065
     Dates: end: 20140929
  2. ENBREL [Suspect]
     Active Substance: ETANERCEPT
     Dosage: 50 MG, WEEKLY
     Route: 065
     Dates: start: 20150129

REACTIONS (10)
  - Inflammation [Unknown]
  - Decreased immune responsiveness [Unknown]
  - Toothache [Unknown]
  - Viral infection [Unknown]
  - Arthralgia [Unknown]
  - Gingivitis [Unknown]
  - Joint stiffness [Unknown]
  - Eczema [Unknown]
  - Sarcoidosis [Unknown]
  - Rash [Unknown]
